FAERS Safety Report 17933904 (Version 1)
Quarter: 2020Q2

REPORT INFORMATION
  Report Type: Spontaneous
  Country: DE (occurrence: DE)
  Receive Date: 20200623
  Receipt Date: 20200623
  Transmission Date: 20200714
  Serious: Yes (Life-Threatening, Hospitalization)
  Sender: FDA-Public Use
  Company Number: DE-PURDUE-GBR-2020-0077323

PATIENT
  Age: 80 Year
  Sex: Female

DRUGS (12)
  1. TRIMINEURIN [Suspect]
     Active Substance: TRIMIPRAMINE MALEATE
     Indication: PRODUCT USED FOR UNKNOWN INDICATION
     Dosage: UNK (5-0-0-0, TROPFEN)
     Route: 048
  2. PANTOPRAZOL [Concomitant]
     Active Substance: PANTOPRAZOLE SODIUM
     Dosage: 20 MG, BID [STRENGTH 20 MG, 1-0-1-0, TABLETTEN]
     Route: 048
  3. METAMIZOL                          /06276704/ [Concomitant]
     Active Substance: METAMIZOLE SODIUM
     Dosage: 500 MG, QID [STRENGTH 500 MG, 1-1-1-1, TABLETTEN]
     Route: 048
  4. HYDROMORPHONE HYDROCHLORIDE. [Suspect]
     Active Substance: HYDROMORPHONE HYDROCHLORIDE
     Indication: PRODUCT USED FOR UNKNOWN INDICATION
     Dosage: 4 MG, BID [STRENGTH 4 MG, 1-0-1-0, KAPSELN]
     Route: 048
  5. LEVOTHYROXINE SODIUM. [Concomitant]
     Active Substance: LEVOTHYROXINE SODIUM
     Dosage: 75 MCG, DAILY [STRENGTH 75 MCG, 1-0-0-0, TABLETTEN]
     Route: 048
  6. ACC                                /00082801/ [Concomitant]
     Active Substance: ACETYLCYSTEINE
     Dosage: 600 MG, DAILY [STRENGTH 600 MG, 1-0-0-0,BRAUSETABLETTEN]
     Route: 048
  7. CLOPIDOGREL [Concomitant]
     Active Substance: CLOPIDOGREL BISULFATE
     Dosage: 75 MG, DAILY [STRENGTH 75 MG, 1-0-0-0, TABLETTEN]
     Route: 048
  8. XELEVIA [Suspect]
     Active Substance: SITAGLIPTIN PHOSPHATE
     Indication: PRODUCT USED FOR UNKNOWN INDICATION
     Dosage: 100 MG, DAILY [STRENGTH 100 MG, 1-0-0-0, TABLETTEN]
     Route: 048
  9. COLECALCIFEROL [Concomitant]
     Active Substance: CHOLECALCIFEROL
     Dosage: 1000 IU, DAILY [STRENGTH 1000 IE, 1-0-0-0, TABLETTEN]
     Route: 048
  10. ATORVASTATIN [Concomitant]
     Active Substance: ATORVASTATIN
     Dosage: 20 MG, DAILY [STRENGTH 20 MG, 0-0-1-0, TABLETTEN]
     Route: 048
  11. CANDESARTAN. [Concomitant]
     Active Substance: CANDESARTAN
     Dosage: 16 MG, BID [STRENGTH 16 MG, 1-0-1-0, TABLETTEN]
     Route: 048
  12. AMLODIPIN                          /00972401/ [Concomitant]
     Active Substance: AMLODIPINE BESYLATE
     Dosage: 5 MG, BID [STRENGTH 5 MG, 0-1-0-1, TABLETTEN]
     Route: 048

REACTIONS (5)
  - Constipation [Unknown]
  - Abdominal distension [Unknown]
  - Abdominal pain upper [Unknown]
  - Abdominal pain [Unknown]
  - General physical health deterioration [Unknown]
